FAERS Safety Report 12570069 (Version 2)
Quarter: 2016Q4

REPORT INFORMATION
  Report Type: Spontaneous
  Country: US (occurrence: US)
  Receive Date: 20160719
  Receipt Date: 20161012
  Transmission Date: 20170207
  Serious: No
  Sender: FDA-Public Use
  Company Number: US-TEVA-666325USA

PATIENT
  Age: 43 Year
  Sex: Male

DRUGS (2)
  1. ZECUITY [Suspect]
     Active Substance: SUMATRIPTAN SUCCINATE
     Route: 062
     Dates: start: 20160601, end: 20160601
  2. ZECUITY [Suspect]
     Active Substance: SUMATRIPTAN SUCCINATE
     Indication: MIGRAINE
     Route: 062
     Dates: start: 20160530, end: 20160530

REACTIONS (7)
  - Application site discolouration [Recovered/Resolved]
  - Application site paraesthesia [Recovered/Resolved]
  - Product physical issue [Unknown]
  - Application site erythema [Recovered/Resolved]
  - Product leakage [Unknown]
  - Incorrect drug administration duration [Unknown]
  - Wrong technique in product usage process [Unknown]

NARRATIVE: CASE EVENT DATE: 20160530
